FAERS Safety Report 18554578 (Version 2)
Quarter: 2020Q4

REPORT INFORMATION
  Report Type: Spontaneous
  Country: US (occurrence: US)
  Receive Date: 20201127
  Receipt Date: 20201209
  Transmission Date: 20210114
  Serious: Yes (Other)
  Sender: FDA-Public Use
  Company Number: US-ALLERGAN-2045912US

PATIENT
  Sex: Female

DRUGS (1)
  1. UBRELVY [Suspect]
     Active Substance: UBROGEPANT
     Indication: MIGRAINE
     Dosage: UNK
     Dates: start: 202005, end: 202011

REACTIONS (8)
  - Drug ineffective [Unknown]
  - Iritis [Not Recovered/Not Resolved]
  - Nausea [Unknown]
  - Conjunctival haemorrhage [Not Recovered/Not Resolved]
  - Lower limb fracture [Unknown]
  - Dizziness [Unknown]
  - Vitreous floaters [Unknown]
  - Vision blurred [Unknown]

NARRATIVE: CASE EVENT DATE: 202006
